FAERS Safety Report 5473509-X (Version None)
Quarter: 2007Q4

REPORT INFORMATION
  Report Type: 
  Country: None (occurrence: None)
  Receive Date: 20071001
  Receipt Date: 20040625
  Transmission Date: 20080405
  Serious: Yes (Other)
  Sender: FDA-Public Use
  Company Number: US-PFIZER INC-2007064173

PATIENT
  Sex: Female

DRUGS (3)
  1. CELEBREX [Suspect]
  2. DILANTIN [Suspect]
  3. PHENOBARBITAL TAB [Suspect]

REACTIONS (1)
  - CONVULSION [None]
